FAERS Safety Report 20814627 (Version 2)
Quarter: 2022Q3

REPORT INFORMATION
  Report Type: Spontaneous
  Country: JP (occurrence: JP)
  Receive Date: 20220511
  Receipt Date: 20220808
  Transmission Date: 20221026
  Serious: Yes (Hospitalization, Other)
  Sender: FDA-Public Use
  Company Number: JP-CHUGAI-2022016713

PATIENT
  Age: 66 Year
  Sex: Female
  Weight: 40.8 kg

DRUGS (7)
  1. ACTEMRA [Suspect]
     Active Substance: TOCILIZUMAB
     Indication: Rheumatoid arthritis
     Dosage: 162 MILLIGRAM, ONCE/2WEEKS
     Route: 058
     Dates: end: 202203
  2. RHEUMATREX [Suspect]
     Active Substance: METHOTREXATE SODIUM
     Indication: Product used for unknown indication
     Dosage: 4 MG/DAY, TWICE A WEEK (MONDAY AND TUESDAY)
     Route: 048
     Dates: end: 202203
  3. FOLIC ACID [Concomitant]
     Active Substance: FOLIC ACID
     Dosage: UNK
     Route: 065
  4. ELDECALCITOL [Concomitant]
     Active Substance: ELDECALCITOL
     Dosage: UNK
     Route: 048
  5. CALCIUM ASPARTATE [Concomitant]
     Active Substance: CALCIUM ASPARTATE
     Dosage: UNK
     Route: 065
  6. PREDONINE [Concomitant]
     Active Substance: PREDNISOLONE
     Dosage: 20 MILLIGRAM
     Route: 065
     Dates: end: 20200304
  7. PREDONINE [Concomitant]
     Active Substance: PREDNISOLONE
     Dosage: 20 UNK
     Route: 065
     Dates: start: 20220304

REACTIONS (3)
  - Cutaneous vasculitis [Not Recovered/Not Resolved]
  - Cytomegalovirus infection [Unknown]
  - Fall [Unknown]

NARRATIVE: CASE EVENT DATE: 20210801
